FAERS Safety Report 7649961-8 (Version None)
Quarter: 2011Q3

REPORT INFORMATION
  Report Type: 
  Country: None (occurrence: None)
  Receive Date: 20110727
  Receipt Date: 20110718
  Transmission Date: 20111222
  Serious: Yes (Disabling, Other)
  Sender: FDA-Public Use
  Company Number: ACO_25897_2011

PATIENT
  Age: 41 Year
  Sex: Female
  Weight: 63.5 kg

DRUGS (6)
  1. AMPYRA [Suspect]
     Indication: GAIT DISTURBANCE
     Dosage: 10 MG, BID, ORAL
     Route: 048
     Dates: start: 20110710, end: 20110715
  2. GABAPENTIN [Concomitant]
  3. VESICARE [Concomitant]
  4. COPAXONE [Concomitant]
  5. BACLOFEN [Concomitant]
  6. PROAIR HFA (SALBUTAMOL SULFATE) [Concomitant]

REACTIONS (5)
  - DIZZINESS [None]
  - FEELING ABNORMAL [None]
  - TREMOR [None]
  - CHEST DISCOMFORT [None]
  - APHAGIA [None]
